FAERS Safety Report 16252158 (Version 2)
Quarter: 2019Q3

REPORT INFORMATION
  Report Type: Spontaneous
  Country: CA (occurrence: CA)
  Receive Date: 20190429
  Receipt Date: 20190726
  Transmission Date: 20191004
  Serious: Yes (Other)
  Sender: FDA-Public Use
  Company Number: CA-PFIZER INC-2019177029

PATIENT
  Age: 50 Year
  Sex: Male

DRUGS (1)
  1. PRISTIQ EXTENDED-RELEASE [Suspect]
     Active Substance: DESVENLAFAXINE SUCCINATE
     Dosage: 50 MG, UNK

REACTIONS (11)
  - Dependence [Unknown]
  - Nightmare [Unknown]
  - Sleep disorder [Unknown]
  - Antisocial behaviour [Unknown]
  - Irritability [Unknown]
  - Mood altered [Unknown]
  - Somnambulism [Unknown]
  - Suicidal ideation [Unknown]
  - Product dose omission [Unknown]
  - Fear [Unknown]
  - Impaired driving ability [Unknown]
